FAERS Safety Report 20985108 (Version 1)
Quarter: 2022Q2

REPORT INFORMATION
  Report Type: Spontaneous
  Country: US (occurrence: US)
  Receive Date: 20220621
  Receipt Date: 20220621
  Transmission Date: 20220721
  Serious: Yes (Other)
  Sender: FDA-Public Use
  Company Number: US-AMGEN-USASP2022103972

PATIENT
  Age: 76 Year
  Sex: Female

DRUGS (2)
  1. AIMOVIG [Suspect]
     Active Substance: ERENUMAB-AOOE
     Indication: Migraine
     Dosage: 140 MILLIGRAM, QMO
     Route: 058
     Dates: start: 201811
  2. IMITREX [Concomitant]
     Active Substance: SUMATRIPTAN SUCCINATE
     Indication: Product used for unknown indication
     Dosage: UNK
     Route: 065

REACTIONS (19)
  - Inflammatory bowel disease [Unknown]
  - Lyme disease [Unknown]
  - Device difficult to use [Unknown]
  - Accidental exposure to product [Unknown]
  - Product storage error [Unknown]
  - Therapeutic product effect incomplete [Unknown]
  - Irritable bowel syndrome [Unknown]
  - Injection site bruising [Unknown]
  - Injection site haemorrhage [Unknown]
  - Weight decreased [Unknown]
  - Immune system disorder [Unknown]
  - Headache [Unknown]
  - Hyperacusis [Unknown]
  - Quality of life decreased [Unknown]
  - Visual field defect [Unknown]
  - Aura [Unknown]
  - Hormone therapy [Unknown]
  - Injection site reaction [Unknown]
  - Wrong technique in product usage process [Unknown]

NARRATIVE: CASE EVENT DATE: 20220601
